FAERS Safety Report 6038577-5 (Version None)
Quarter: 2009Q1

REPORT INFORMATION
  Report Type: 
  Country: None (occurrence: None)
  Receive Date: 20090115
  Receipt Date: 20090109
  Transmission Date: 20090719
  Serious: Yes (Hospitalization)
  Sender: FDA-Public Use
  Company Number: A0718147A

PATIENT
  Age: 44 Year
  Sex: Female
  Weight: 79.1 kg

DRUGS (1)
  1. AVANDIA [Suspect]
     Indication: TYPE 2 DIABETES MELLITUS
     Dosage: 8MG PER DAY
     Route: 048
     Dates: start: 20010101, end: 20050101

REACTIONS (7)
  - ACTIVITIES OF DAILY LIVING IMPAIRED [None]
  - DYSPNOEA [None]
  - FATIGUE [None]
  - HEART INJURY [None]
  - MYOCARDIAL INFARCTION [None]
  - OEDEMA [None]
  - QUALITY OF LIFE DECREASED [None]
